FAERS Safety Report 6522444-4 (Version None)
Quarter: 2009Q4

REPORT INFORMATION
  Report Type: 
  Country: None (occurrence: None)
  Receive Date: 20091230
  Receipt Date: 20091218
  Transmission Date: 20100525
  Serious: Yes (Hospitalization)
  Sender: FDA-Public Use
  Company Number: JAUSA13795

PATIENT
  Age: 21 Year
  Sex: Female

DRUGS (2)
  1. RISPERDAL [Suspect]
     Indication: SCHIZOAFFECTIVE DISORDER
     Route: 048
     Dates: start: 19940501, end: 19940626
  2. RISPERDAL [Suspect]
     Route: 048
     Dates: start: 19940501, end: 19940626

REACTIONS (9)
  - DRUG TOXICITY [None]
  - DRY MOUTH [None]
  - DRY SKIN [None]
  - ELECTROCARDIOGRAM QT PROLONGED [None]
  - HYPERCHLORAEMIA [None]
  - HYPOKALAEMIA [None]
  - HYPOMAGNESAEMIA [None]
  - LETHARGY [None]
  - URINARY RETENTION [None]
